FAERS Safety Report 4409591-8 (Version None)
Quarter: 2004Q3

REPORT INFORMATION
  Report Type: 
  Country: None (occurrence: None)
  Receive Date: 20040726
  Receipt Date: 20040712
  Transmission Date: 20050211
  Serious: Yes (Hospitalization)
  Sender: FDA-Public Use
  Company Number: 6009632

PATIENT
  Age: 73 Year
  Sex: Male

DRUGS (8)
  1. CARDENSIEL (TABLETS) (BISOPROLOL) [Suspect]
  2. AMLOR (CAPSULES) (AMLODIPINE BESILATE) [Suspect]
     Dosage: ORAL
     Route: 048
  3. ZESTRIL (TABLETS) (LISINOPRIL) [Suspect]
  4. ZOLOFT (CAPSULES) (SERTRALINE HYDROCHLORIDE) [Suspect]
     Dosage: ORAL
     Route: 048
  5. TAHOR (TABLETS) (ATORVASTATIN CALCIUM) [Suspect]
  6. LASIX [Suspect]
  7. UMULINE (INSULIN HUMAN ZINC SUSPENSION) [Suspect]
  8. OMEPRAZOLE [Suspect]

REACTIONS (1)
  - INTERSTITIAL LUNG DISEASE [None]
